FAERS Safety Report 6503539-8 (Version None)
Quarter: 2009Q4

REPORT INFORMATION
  Report Type: 
  Country: None (occurrence: None)
  Receive Date: 20091217
  Receipt Date: 20091214
  Transmission Date: 20100525
  Serious: Yes (Hospitalization, Disabling)
  Sender: FDA-Public Use
  Company Number: FR-BAYER-200942884GPV

PATIENT
  Age: 66 Year
  Sex: Male

DRUGS (8)
  1. NEXAVAR [Suspect]
     Indication: HEPATIC NEOPLASM MALIGNANT
     Dosage: TOTAL DAILY DOSE: 800 MG  UNIT DOSE: 200 MG
     Route: 048
     Dates: start: 20070616, end: 20070823
  2. COAPROVEL [Suspect]
     Indication: DRUG USE FOR UNKNOWN INDICATION
     Dosage: TOTAL DAILY DOSE: 1 DF
     Route: 048
     Dates: end: 20070818
  3. INSULATARD [Concomitant]
     Indication: TYPE 1 DIABETES MELLITUS
     Dosage: 0.3 TO 1 UNIT/KG/DAY
     Route: 058
  4. GLUCOPHAGE [Concomitant]
     Indication: TYPE 1 DIABETES MELLITUS
     Dosage: TOTAL DAILY DOSE: 3000 MG
     Route: 048
     Dates: end: 20070820
  5. SECTRAL [Concomitant]
     Dosage: TOTAL DAILY DOSE: 400 MG
     Route: 048
  6. PLAVIX [Concomitant]
     Indication: CORONARY ARTERIAL STENT INSERTION
     Dosage: TOTAL DAILY DOSE: 75 MG
     Route: 048
  7. TAHOR [Concomitant]
     Indication: ATHEROSCLEROSIS PROPHYLAXIS
     Dosage: TOTAL DAILY DOSE: 40 MG
     Route: 048
  8. MOPRAL [Concomitant]
     Route: 048

REACTIONS (3)
  - CONDITION AGGRAVATED [None]
  - DIARRHOEA [None]
  - HYPOKALAEMIA [None]
